FAERS Safety Report 12396256 (Version 4)
Quarter: 2019Q1

REPORT INFORMATION
  Report Type: Report from Study
  Country: US (occurrence: US)
  Receive Date: 20160524
  Receipt Date: 20190115
  Transmission Date: 20190417
  Serious: Yes (Hospitalization)
  Sender: FDA-Public Use
  Company Number: US-ROCHE-1689666

PATIENT
  Age: 84 Year
  Sex: Male
  Weight: 59 kg

DRUGS (19)
  1. IRINOTECAN [Suspect]
     Active Substance: IRINOTECAN
     Indication: COLORECTAL CANCER METASTATIC
     Dosage: LAST ADMINISTERED DATE: 22/DEC/2015
     Route: 042
     Dates: start: 20151222, end: 20151222
  2. IRINOTECAN [Suspect]
     Active Substance: IRINOTECAN
     Route: 042
     Dates: start: 201506, end: 201508
  3. IRINOTECAN [Suspect]
     Active Substance: IRINOTECAN
     Dosage: MOST RECENT DOSE: 06/MAY/2016
     Route: 042
     Dates: start: 20160506
  4. ELOXATIN [Concomitant]
     Active Substance: OXALIPLATIN
     Route: 065
     Dates: start: 20150302, end: 20150413
  5. VEMURAFENIB. [Suspect]
     Active Substance: VEMURAFENIB
     Indication: COLORECTAL CANCER METASTATIC
     Dosage: TOTAL DOSE ADMINISTERED TILL THIS COURSE: 15360 MG.?LAST DOSE PRIOR TO AE ON: 15/JAN/2016
     Route: 048
     Dates: start: 20151222, end: 20151227
  6. CETUXIMAB. [Suspect]
     Active Substance: CETUXIMAB
     Dosage: TOTAL DOSE ADMINISTERED 1752MG
     Route: 042
     Dates: start: 20160422, end: 20160506
  7. VEMURAFENIB. [Suspect]
     Active Substance: VEMURAFENIB
     Dosage: C7D1 06/MAY/2016-13/MAY/2016
     Route: 048
     Dates: start: 20160506, end: 20160513
  8. CETUXIMAB. [Suspect]
     Active Substance: CETUXIMAB
     Indication: COLORECTAL CANCER METASTATIC
     Dosage: LAST ADMINISTERED DATE: 22/DEC/2015
     Route: 042
     Dates: start: 20151222
  9. CETUXIMAB. [Suspect]
     Active Substance: CETUXIMAB
     Dosage: MOST RECENT DOSE: 06/MAY/2016
     Route: 042
     Dates: start: 20160506
  10. 5-FLUOROURACIL [Concomitant]
     Active Substance: FLUOROURACIL
     Route: 065
     Dates: start: 201506, end: 201508
  11. 5-FLUOROURACIL [Concomitant]
     Active Substance: FLUOROURACIL
     Route: 065
     Dates: start: 20150302, end: 20150413
  12. VEMURAFENIB. [Suspect]
     Active Substance: VEMURAFENIB
     Dosage: CYCLE 10?LAST DOSE PRIOR TO EVENT: 23/AUG/2016
     Route: 048
     Dates: start: 20160727, end: 20160823
  13. IRINOTECAN [Suspect]
     Active Substance: IRINOTECAN
     Route: 042
     Dates: start: 20151002
  14. IRINOTECAN [Suspect]
     Active Substance: IRINOTECAN
     Dosage: TOTAL DOSE ADMINISTERED 520MG
     Route: 042
     Dates: start: 20160422, end: 20160506
  15. VEMURAFENIB. [Suspect]
     Active Substance: VEMURAFENIB
     Dosage: TOTAL ADMINISTERED THIS COURSE 15360MG
     Route: 048
     Dates: start: 20151002, end: 20160823
  16. VEMURAFENIB. [Suspect]
     Active Substance: VEMURAFENIB
     Dosage: TOTAL ADMINISTERED THIS COURSE 41280MG
     Route: 048
     Dates: start: 20160422, end: 20160513
  17. CETUXIMAB. [Suspect]
     Active Substance: CETUXIMAB
     Dosage: DATE OF LAST DOSE PRIOR TO EVENT: 10/AUG/2016
     Route: 042
     Dates: start: 20160727, end: 20160802
  18. CETUXIMAB. [Suspect]
     Active Substance: CETUXIMAB
     Route: 042
     Dates: start: 20151002, end: 20151008
  19. IRINOTECAN [Suspect]
     Active Substance: IRINOTECAN
     Dosage: DATE OF LAST DOSE PRIOR TO EVENT: 10/AUG/2016
     Route: 042
     Dates: start: 20160727, end: 20160810

REACTIONS (6)
  - Febrile neutropenia [Recovering/Resolving]
  - Anaemia [Recovered/Resolved]
  - Small intestinal haemorrhage [Recovered/Resolved]
  - Headache [Unknown]
  - Anaemia [Recovering/Resolving]
  - Small intestinal obstruction [Recovered/Resolved with Sequelae]

NARRATIVE: CASE EVENT DATE: 20151224
